FAERS Safety Report 18315090 (Version 1)
Quarter: 2020Q3

REPORT INFORMATION
  Report Type: Spontaneous
  Country: US (occurrence: US)
  Receive Date: 20200926
  Receipt Date: 20200926
  Transmission Date: 20201103
  Serious: No
  Sender: FDA-Public Use
  Company Number: US-SA-2020SA261506

PATIENT

DRUGS (2)
  1. DUPIXENT [Suspect]
     Active Substance: DUPILUMAB
     Indication: DERMATITIS ATOPIC
     Dosage: UNK
     Route: 065
  2. NA [Concomitant]
     Active Substance: SODIUM
     Route: 065

REACTIONS (3)
  - Herpes virus infection [Unknown]
  - Skin infection [Unknown]
  - Off label use [Unknown]
